FAERS Safety Report 26140065 (Version 1)
Quarter: 2025Q4

REPORT INFORMATION
  Report Type: Spontaneous
  Country: US (occurrence: None)
  Receive Date: 20251209
  Receipt Date: 20251209
  Transmission Date: 20260117
  Serious: Yes (Life-Threatening, Hospitalization)
  Sender: FDA-CTU
  Company Number: None

PATIENT
  Age: 56 Year
  Sex: Female
  Weight: 65 kg

DRUGS (4)
  1. SOTATERCEPT-CSRK [Suspect]
     Active Substance: SOTATERCEPT-CSRK
     Indication: Pulmonary arterial hypertension
     Dosage: OTHER FREQUENCY : EVERY 3 WEEKS;
     Route: 058
     Dates: start: 20240814, end: 20251001
  2. CELLCEPT [Concomitant]
     Active Substance: MYCOPHENOLATE MOFETIL
     Dates: start: 20210801
  3. NINTEDANIB [Concomitant]
     Active Substance: NINTEDANIB
     Dates: start: 20220202
  4. SILDENAFIL [Concomitant]
     Active Substance: SILDENAFIL
     Dates: start: 20201002

REACTIONS (9)
  - Epistaxis [None]
  - Telangiectasia [None]
  - Condition aggravated [None]
  - Oxygen saturation decreased [None]
  - Ventilation perfusion mismatch [None]
  - Interstitial lung disease [None]
  - Lung transplant [None]
  - Congenital coronary artery malformation [None]
  - Arteriovenous malformation [None]

NARRATIVE: CASE EVENT DATE: 20240815
